FAERS Safety Report 14852514 (Version 1)
Quarter: 2018Q2

REPORT INFORMATION
  Report Type: Spontaneous
  Country: US (occurrence: US)
  Receive Date: 20180419
  Receipt Date: 20180419
  Transmission Date: 20180711
  Serious: Yes (Other)
  Sender: FDA-Public Use
  Company Number: None

PATIENT
  Sex: Female

DRUGS (1)
  1. ACTEMRA [Suspect]
     Active Substance: TOCILIZUMAB
     Indication: RHEUMATOID ARTHRITIS
     Dosage: OTHER DOSE:5MG PER KG INTO 10;?
     Dates: start: 201802

REACTIONS (3)
  - Joint swelling [None]
  - Rhinorrhoea [None]
  - Therapy cessation [None]

NARRATIVE: CASE EVENT DATE: 2018
